FAERS Safety Report 19012570 (Version 1)
Quarter: 2021Q1

REPORT INFORMATION
  Report Type: Spontaneous
  Country: JP (occurrence: JP)
  Receive Date: 20210316
  Receipt Date: 20210316
  Transmission Date: 20210420
  Serious: Yes (Hospitalization, Other)
  Sender: FDA-Public Use
  Company Number: JP-AMGEN-JPNSP2021027330

PATIENT
  Age: 81 Year
  Sex: Female

DRUGS (1)
  1. BLINCYTO [Suspect]
     Active Substance: BLINATUMOMAB
     Indication: ACUTE LYMPHOCYTIC LEUKAEMIA
     Dosage: 15 MICROGRAM/SQ. METER, QD
     Route: 041
     Dates: start: 20200730, end: 20210210

REACTIONS (1)
  - Leukaemic infiltration extramedullary [Not Recovered/Not Resolved]

NARRATIVE: CASE EVENT DATE: 20201225
